FAERS Safety Report 25177406 (Version 2)
Quarter: 2025Q2

REPORT INFORMATION
  Report Type: Report from Study
  Country: US (occurrence: US)
  Receive Date: 20250409
  Receipt Date: 20250411
  Transmission Date: 20250717
  Serious: Yes (Other)
  Sender: UCB
  Company Number: US-UCBSA-2025019786

PATIENT

DRUGS (2)
  1. LEVETIRACETAM [Suspect]
     Active Substance: LEVETIRACETAM
     Indication: Status epilepticus
     Route: 042
  2. LEVETIRACETAM [Suspect]
     Active Substance: LEVETIRACETAM
     Indication: Off label use

REACTIONS (7)
  - Arrhythmia [Unknown]
  - Tachycardia [Unknown]
  - Hypotension [Unknown]
  - Injection site reaction [Unknown]
  - Hypertension [Unknown]
  - Off label use [Unknown]
  - Overdose [Unknown]
